FAERS Safety Report 8154885-6 (Version None)
Quarter: 2012Q1

REPORT INFORMATION
  Report Type: 
  Country: None (occurrence: None)
  Receive Date: 20120221
  Receipt Date: 20120215
  Transmission Date: 20120608
  Serious: Yes (Death, Other)
  Sender: FDA-Public Use
  Company Number: PHHY2012US013634

PATIENT
  Age: 39 Year
  Sex: Female

DRUGS (5)
  1. TACROLIMUS [Concomitant]
     Indication: HEART TRANSPLANT
  2. SIROLIMUS [Concomitant]
     Indication: HEART TRANSPLANT
  3. CYCLOSPORINE [Suspect]
     Indication: HEART TRANSPLANT
     Dosage: UNK
  4. MYCOPHENOLATE MOFETIL [Concomitant]
     Indication: HEART TRANSPLANT
  5. TEMSIROLIMUS [Concomitant]
     Indication: HEART TRANSPLANT

REACTIONS (3)
  - CARDIAC FAILURE [None]
  - HEART TRANSPLANT REJECTION [None]
  - ACUTE PROMYELOCYTIC LEUKAEMIA [None]
